FAERS Safety Report 21738205 (Version 1)
Quarter: 2022Q4

REPORT INFORMATION
  Report Type: Spontaneous
  Country: BE (occurrence: BE)
  Receive Date: 20221216
  Receipt Date: 20221216
  Transmission Date: 20230113
  Serious: Yes (Other)
  Sender: FDA-Public Use
  Company Number: BE-009507513-2212BEL003503

PATIENT
  Sex: Male

DRUGS (2)
  1. TEMODAL [Suspect]
     Active Substance: TEMOZOLOMIDE
     Indication: Glioblastoma multiforme
     Dosage: RADIOTHERAPY (30X2GY) AND CONCOMITANT TEMODAL (ADJUVANT AS FROM FEB 2021).
     Route: 048
     Dates: start: 202102, end: 2022
  2. TEMODAL [Suspect]
     Active Substance: TEMOZOLOMIDE
     Dosage: UNKNOWN
     Dates: start: 202203

REACTIONS (2)
  - Malignant neoplasm progression [Unknown]
  - Recurrent cancer [Unknown]

NARRATIVE: CASE EVENT DATE: 20220301
